FAERS Safety Report 9385474 (Version 2)
Quarter: 2013Q4

REPORT INFORMATION
  Report Type: Spontaneous
  Country: CA (occurrence: None)
  Receive Date: 20130701
  Receipt Date: 20131104
  Transmission Date: 20140711
  Serious: Yes (Congenital Anomaly, Other)
  Sender: FDA-Public Use
  Company Number: 2013028284

PATIENT
  Sex: Male

DRUGS (3)
  1. FRAGMIN [Suspect]
     Indication: PULMONARY EMBOLISM
     Route: 064
     Dates: start: 20120722, end: 20121112
  2. FRAGMIN [Suspect]
     Indication: THROMBOSIS PROPHYLAXIS
     Route: 064
     Dates: start: 20120722, end: 20121112
  3. MATERNA  (DOCUSATE SODIUM, MIERALS NOS, VITAMINS NOS) [Concomitant]

REACTIONS (4)
  - Maternal drugs affecting foetus [None]
  - Apgar score low [None]
  - Anomalous pulmonary venous connection [None]
  - Congenital anomaly [None]
